FAERS Safety Report 15221335 (Version 1)
Quarter: 2018Q3

REPORT INFORMATION
  Report Type: Report from Study
  Country: US (occurrence: US)
  Receive Date: 20180731
  Receipt Date: 20180731
  Transmission Date: 20181010
  Serious: Yes (Other)
  Sender: FDA-Public Use
  Company Number: PHEH2018US030613

PATIENT
  Sex: Male

DRUGS (1)
  1. ENTRESTO [Suspect]
     Active Substance: SACUBITRIL\VALSARTAN
     Indication: PRODUCT USED FOR UNKNOWN INDICATION
     Dosage: UNK
     Route: 065

REACTIONS (7)
  - Respiratory rate decreased [Unknown]
  - Blood pressure decreased [Unknown]
  - Chest discomfort [Unknown]
  - Circulatory collapse [Unknown]
  - Dizziness [Unknown]
  - Hypothermia [Unknown]
  - Paraesthesia [Unknown]
